FAERS Safety Report 8189885-3 (Version None)
Quarter: 2012Q1

REPORT INFORMATION
  Report Type: 
  Country: None (occurrence: None)
  Receive Date: 20120307
  Receipt Date: 20120227
  Transmission Date: 20120608
  Serious: Yes (Other)
  Sender: FDA-Public Use
  Company Number: US-BRISTOL-MYERS SQUIBB COMPANY-16421356

PATIENT
  Sex: Male
  Weight: 41 kg

DRUGS (2)
  1. LAMICTAL [Suspect]
     Indication: ASPERGER'S DISORDER
  2. ABILIFY [Suspect]
     Indication: ASPERGER'S DISORDER

REACTIONS (3)
  - FRUSTRATION [None]
  - AGGRESSION [None]
  - FEAR [None]
